FAERS Safety Report 4651046-X (Version None)
Quarter: 2005Q2

REPORT INFORMATION
  Report Type: 
  Country: None (occurrence: None)
  Receive Date: 20050429
  Receipt Date: 20050416
  Transmission Date: 20051028
  Serious: Yes (Other)
  Sender: FDA-Public Use
  Company Number: 2005061118

PATIENT
  Sex: Female
  Weight: 77.1115 kg

DRUGS (6)
  1. BEXTRA [Suspect]
     Indication: ARTHRITIS
     Dosage: 10 MG (10 MG, 1 IN 1 D), ORAL
     Route: 048
  2. VITAMINS (VITAMINS) [Concomitant]
  3. CHONDROITIN/GLUCOSAMINE (CHONDROITIN, GLUCOSAMINE) [Concomitant]
  4. CALCIUM (CALCIUM) [Concomitant]
  5. PAROXETINE HCL [Concomitant]
  6. ALL OTHER THERAPEUTIC PRODUCTS (ALL OTHER THERAPEUTIC PRODUCTS) [Concomitant]

REACTIONS (8)
  - ACNE [None]
  - ASTHENIA [None]
  - DIARRHOEA HAEMORRHAGIC [None]
  - DRUG INEFFECTIVE [None]
  - IMPAIRED HEALING [None]
  - INADEQUATE ANALGESIA [None]
  - PAIN [None]
  - SCAR [None]
